FAERS Safety Report 6732901-3 (Version None)
Quarter: 2010Q2

REPORT INFORMATION
  Report Type: 
  Country: None (occurrence: None)
  Receive Date: 20100519
  Receipt Date: 20100510
  Transmission Date: 20101027
  Serious: Yes (Other)
  Sender: FDA-Public Use
  Company Number: US-WATSON-2010-06314

PATIENT
  Age: 23 Year
  Sex: Female

DRUGS (5)
  1. LEVONORGESTREL [Suspect]
     Indication: POST COITAL CONTRACEPTION
     Dosage: 2 TABLETS, 1ST TABLET TAKEN AFTER 24 HRS, SECOND TABLET 12 HRS LATER AFTER 1ST DOSE
     Route: 048
     Dates: start: 20100503, end: 20100504
  2. LAMICTAL [Concomitant]
     Indication: EPILEPSY
     Dosage: UNK
     Route: 048
  3. VITAMIN B1 TAB [Concomitant]
     Indication: EPILEPSY
     Dosage: UNK
     Route: 048
  4. VITAMIN B12                        /00056201/ [Concomitant]
     Indication: EPILEPSY
     Dosage: UNK
     Route: 048
  5. FOLIC ACID [Concomitant]
     Indication: EPILEPSY
     Dosage: UNK
     Route: 048

REACTIONS (9)
  - COMPLEX PARTIAL SEIZURES [None]
  - DIZZINESS [None]
  - DYSMENORRHOEA [None]
  - HEADACHE [None]
  - MENOMETRORRHAGIA [None]
  - MIGRAINE [None]
  - NAUSEA [None]
  - SYNCOPE [None]
  - VOMITING [None]
